FAERS Safety Report 4911759-9 (Version None)
Quarter: 2006Q1

REPORT INFORMATION
  Report Type: 
  Country: None (occurrence: None)
  Receive Date: 20060213
  Receipt Date: 20060213
  Transmission Date: 20060701
  Serious: Yes (Hospitalization, Other)
  Sender: FDA-Public Use
  Company Number: None

PATIENT
  Age: 15 Year
  Sex: Male
  Weight: 76.2043 kg

DRUGS (1)
  1. KETEK [Suspect]
     Indication: PNEUMONIA
     Dosage: TWO   BID  PO
     Route: 048

REACTIONS (6)
  - ABDOMINAL PAIN [None]
  - DIABETES MELLITUS INSULIN-DEPENDENT [None]
  - GALLBLADDER DISORDER [None]
  - GASTRIC DISORDER [None]
  - HEPATOMEGALY [None]
  - SPLENOMEGALY [None]
